FAERS Safety Report 7867753-1 (Version None)
Quarter: 2011Q4

REPORT INFORMATION
  Report Type: 
  Country: None (occurrence: None)
  Receive Date: 20111026
  Receipt Date: 20111019
  Transmission Date: 20120403
  Serious: Yes (Life-Threatening, Other)
  Sender: FDA-Public Use
  Company Number: 2006JP001624

PATIENT
  Age: 27 Year
  Sex: Female
  Weight: 38 kg

DRUGS (23)
  1. PROGRAF [Suspect]
     Indication: SMALL INTESTINE TRANSPLANT
     Dosage: 0.10 MG/KG, /D;
     Dates: start: 20040316
  2. PROGRAF [Suspect]
     Indication: IMMUNOSUPPRESSANT DRUG THERAPY
     Dosage: 0.10 MG/KG, /D;
     Dates: start: 20040316
  3. ALINAMIN F (FURSULTIAMINE) [Concomitant]
  4. SIROLIMUS [Concomitant]
  5. BIO THREE (BACTERIA NOS) [Concomitant]
  6. COTRIM [Concomitant]
  7. MEDROL [Concomitant]
  8. LANSOPRAZOLE [Concomitant]
  9. ENTERONON R (STREPTOCOCCUS FAECALIS, LACTOBACILLUS ACIDOPHILUS, STREPT [Concomitant]
  10. RACOL (NUTRIENTS NOS) [Concomitant]
  11. PROGRAF [Suspect]
     Indication: SMALL INTESTINE TRANSPLANT
     Dosage: 4 MG, BID, ORAL; 0.04 MG/KG, /D; 1.5 MG,BID, ORAL
     Route: 048
     Dates: start: 20040316, end: 20051101
  12. PROGRAF [Suspect]
     Indication: IMMUNOSUPPRESSANT DRUG THERAPY
     Dosage: 4 MG, BID, ORAL; 0.04 MG/KG, /D; 1.5 MG,BID, ORAL
     Route: 048
     Dates: start: 20040316, end: 20051101
  13. PROGRAF [Suspect]
     Indication: SMALL INTESTINE TRANSPLANT
     Dosage: 4 MG, BID, ORAL; 0.04 MG/KG, /D; 1.5 MG,BID, ORAL
     Route: 048
     Dates: start: 20051101
  14. PROGRAF [Suspect]
     Indication: IMMUNOSUPPRESSANT DRUG THERAPY
     Dosage: 4 MG, BID, ORAL; 0.04 MG/KG, /D; 1.5 MG,BID, ORAL
     Route: 048
     Dates: start: 20051101
  15. METHYLPREDNISOLONE [Concomitant]
  16. RABEPRAZOLE SODIUM [Concomitant]
  17. REMICADE [Concomitant]
  18. SIMULECT [Concomitant]
  19. FAMOTIDINE [Concomitant]
  20. PROGRAF [Suspect]
     Indication: IMMUNOSUPPRESSANT DRUG THERAPY
     Dosage: 0.3 MG/KG, /D, ORAL; 1.5 MG, BID, ORAL
     Route: 048
  21. PROGRAF [Suspect]
     Indication: SMALL INTESTINE TRANSPLANT
     Dosage: 0.3 MG/KG, /D, ORAL; 1.5 MG, BID, ORAL
     Route: 048
  22. ZENAPAX [Concomitant]
  23. LOPERAMIDE HCL [Concomitant]

REACTIONS (11)
  - DRUG INEFFECTIVE [None]
  - METABOLIC ACIDOSIS [None]
  - RENAL IMPAIRMENT [None]
  - ESCHERICHIA SEPSIS [None]
  - DEHYDRATION [None]
  - INTESTINE TRANSPLANT REJECTION [None]
  - HYPERCHLORAEMIA [None]
  - HYPOMAGNESAEMIA [None]
  - TRANSPLANT REJECTION [None]
  - KLEBSIELLA SEPSIS [None]
  - DIARRHOEA [None]
